FAERS Safety Report 9001845 (Version 1)
Quarter: 2013Q1

REPORT INFORMATION
  Report Type: Spontaneous
  Country: CH (occurrence: CH)
  Receive Date: 20130107
  Receipt Date: 20130107
  Transmission Date: 20140127
  Serious: Yes (Hospitalization, Other)
  Sender: FDA-Public Use
  Company Number: CH-ASTRAZENECA-2012SE96381

PATIENT
  Age: 81 Year
  Sex: 0

DRUGS (9)
  1. ZESTRIL [Suspect]
     Route: 048
     Dates: end: 20121206
  2. LASILACTON [Suspect]
     Route: 048
     Dates: end: 20121206
  3. SINTROM [Concomitant]
     Route: 048
  4. ASPIRIN CARDIO [Concomitant]
     Route: 048
  5. DIGOXINE [Concomitant]
     Route: 048
  6. CORDARONE [Concomitant]
     Route: 048
  7. CARVEDILOL [Concomitant]
     Dosage: 1.25 MG 1 PER 1.5 DAYS
     Route: 048
  8. SORTIS [Concomitant]
     Route: 048
  9. PANTOZOL [Concomitant]
     Route: 048

REACTIONS (3)
  - Toxicity to various agents [Unknown]
  - Electrocardiogram abnormal [Unknown]
  - Hyperkalaemia [Recovered/Resolved]
